FAERS Safety Report 17621080 (Version 1)
Quarter: 2020Q2

REPORT INFORMATION
  Report Type: Spontaneous
  Country: GB (occurrence: GB)
  Receive Date: 20200403
  Receipt Date: 20200403
  Transmission Date: 20200713
  Serious: Yes (Other)
  Sender: FDA-Public Use
  Company Number: GB-TEVA-2020-GB-1201650

PATIENT
  Age: 3 Year
  Sex: Male

DRUGS (2)
  1. SALBUTAMOL [Concomitant]
     Active Substance: ALBUTEROL
     Indication: WHEEZING
  2. MONTELUKAST [Suspect]
     Active Substance: MONTELUKAST SODIUM
     Indication: COUGH
     Dosage: 4 MG
     Route: 048
     Dates: end: 20200211

REACTIONS (8)
  - Petit mal epilepsy [Not Recovered/Not Resolved]
  - Post-traumatic stress disorder [Not Recovered/Not Resolved]
  - Confusional state [Recovering/Resolving]
  - Anxiety [Recovering/Resolving]
  - Neuropsychiatric symptoms [Recovering/Resolving]
  - Thumb sucking [Recovering/Resolving]
  - Emotional distress [Recovering/Resolving]
  - Social avoidant behaviour [Recovering/Resolving]

NARRATIVE: CASE EVENT DATE: 20191031
